FAERS Safety Report 5514939-7 (Version None)
Quarter: 2007Q4

REPORT INFORMATION
  Report Type: 
  Country: None (occurrence: None)
  Receive Date: 20071113
  Receipt Date: 20061208
  Transmission Date: 20080405
  Serious: No
  Sender: FDA-Public Use
  Company Number: A0623555A

PATIENT
  Age: 76 Year
  Sex: Male
  Weight: 79.5 kg

DRUGS (7)
  1. COREG [Suspect]
     Indication: DRUG USE FOR UNKNOWN INDICATION
     Dosage: 3.125MG TWICE PER DAY
     Route: 048
     Dates: start: 20060501
  2. CELEBREX [Concomitant]
  3. HYDROCODONE BITARTRATE AND ACETAMINOPHEN [Concomitant]
  4. EFFEXOR [Concomitant]
  5. CLONAZEPAM [Concomitant]
  6. ASPIRIN [Concomitant]
  7. LASIX [Concomitant]

REACTIONS (3)
  - DRUG ADMINISTRATION ERROR [None]
  - HYPOTENSION [None]
  - SEMEN VOLUME INCREASED [None]
